FAERS Safety Report 9995506 (Version 5)
Quarter: 2014Q2

REPORT INFORMATION
  Report Type: Report from Study
  Country: GR (occurrence: GR)
  Receive Date: 20140311
  Receipt Date: 20140519
  Transmission Date: 20141212
  Serious: Yes (Disabling)
  Sender: FDA-Public Use
  Company Number: GR-ROCHE-1361479

PATIENT
  Age: 82 Year
  Sex: Female
  Weight: 77 kg

DRUGS (6)
  1. VISMODEGIB [Suspect]
     Indication: BASAL CELL CARCINOMA
     Dosage: LAST DOSE PRIOR TO SAE: 01/MAR/2014.
     Route: 048
     Dates: start: 20130517
  2. HYDROCHLOROTHIAZIDE/VALSARTAN [Concomitant]
     Indication: HYPERTENSION
     Dosage: DOSE REPORTED AS 12.5/320 MG.
     Route: 065
     Dates: start: 200801
  3. ESOMEPRAZOLE MAGNESIUM [Concomitant]
     Indication: GASTRITIS
     Route: 065
     Dates: start: 201001
  4. TIOTROPIUM BROMIDE MONOHYDRATE [Concomitant]
     Indication: ASTHMA
     Route: 065
     Dates: start: 200801
  5. BUDESONIDE/FORMOTEROL FUMARATE [Concomitant]
     Indication: ASTHMA
     Dosage: DOSE REPORTED AS 160 + 4.5 MG.
     Route: 065
     Dates: start: 200801
  6. CODEINE, PARACETAMOL + CAFFEINE [Concomitant]
     Indication: LIP OEDEMA
     Dosage: FORM STRENGTH REPORTED AS 400 MG PARACETAMOL, 50 MG CAFFEINE AND 10 MG CODEINE PHOSPHATE.
     Route: 065
     Dates: start: 20130731, end: 20130809

REACTIONS (1)
  - Asthenia [Recovered/Resolved]
